FAERS Safety Report 19709799 (Version 2)
Quarter: 2021Q3

REPORT INFORMATION
  Report Type: Spontaneous
  Country: US (occurrence: US)
  Receive Date: 20210817
  Receipt Date: 20210827
  Transmission Date: 20211014
  Serious: No
  Sender: FDA-Public Use
  Company Number: US-BELCHER PHARMACEUTICALS, LLC-2021US005372

PATIENT
  Age: 70 Year
  Sex: Female

DRUGS (1)
  1. EPINEPHRINE INJECTION USP [Suspect]
     Active Substance: EPINEPHRINE
     Indication: CATARACT OPERATION
     Dosage: 1 MG/ML

REACTIONS (2)
  - Corneal oedema [Recovered/Resolved]
  - Off label use [Unknown]

NARRATIVE: CASE EVENT DATE: 20210614
